FAERS Safety Report 10461055 (Version 1)
Quarter: 2014Q2

REPORT INFORMATION
  Report Type: Spontaneous
  Country: FR (occurrence: None)
  Receive Date: 20140505
  Receipt Date: 20140505
  Transmission Date: 20141212
  Serious: Yes (Other)
  Sender: FDA-Public Use
  Company Number: FK201401547

PATIENT
  Age: 77 Year
  Sex: Male

DRUGS (3)
  1. VOLUVEN [Suspect]
     Indication: PRODUCT USED FOR UNKNOWN INDICATION
     Dates: start: 20140306, end: 20140306
  2. NORADRENALINE (NOREPINEPHRINE) (NOREPINEPHRINE) [Suspect]
     Indication: PRODUCT USED FOR UNKNOWN INDICATION
  3. TAVANIC [Suspect]
     Indication: PRODUCT USED FOR UNKNOWN INDICATION
     Dates: start: 20140306, end: 20140306

REACTIONS (4)
  - Acute coronary syndrome [None]
  - Hypoxia [None]
  - Haemodynamic instability [None]
  - Intestinal infarction [None]
